FAERS Safety Report 13873115 (Version 1)
Quarter: 2017Q3

REPORT INFORMATION
  Report Type: Report from Study
  Country: IT (occurrence: IT)
  Receive Date: 20170816
  Receipt Date: 20170816
  Transmission Date: 20171127
  Serious: Yes (Other)
  Sender: FDA-Public Use
  Company Number: IT-IPSEN BIOPHARMACEUTICALS, INC.-2009-4130

PATIENT
  Age: 12 Year
  Sex: Male
  Weight: 21.9 kg

DRUGS (2)
  1. INCRELEX [Suspect]
     Active Substance: MECASERMIN
     Route: 058
     Dates: start: 20140205
  2. INCRELEX [Suspect]
     Active Substance: MECASERMIN
     Indication: PRIMARY INSULIN LIKE GROWTH FACTOR-1 DEFICIENCY
     Route: 058
     Dates: start: 20081031, end: 20131113

REACTIONS (2)
  - Deafness [Not Recovered/Not Resolved]
  - Condition aggravated [Not Recovered/Not Resolved]

NARRATIVE: CASE EVENT DATE: 200909
